FAERS Safety Report 9519270 (Version 1)
Quarter: 2013Q1

REPORT INFORMATION
  Report Type: Spontaneous
  Country: US (occurrence: None)
  Receive Date: 20130305
  Receipt Date: 20130305
  Transmission Date: 20140127
  Serious: Yes (Hospitalization)
  Sender: FDA-Public Use
  Company Number: 163-21880-12110052

PATIENT
  Age: 84 Year
  Sex: Female
  Weight: 72.12 kg

DRUGS (14)
  1. REVLIMID [Suspect]
     Indication: PLASMA CELL MYELOMA
     Dosage: 5 MG, 21 IN 28 D, PO
     Route: 048
     Dates: start: 20120503
  2. FUROSEMIDE (FUROSEMIDE) (UNKNOWN) [Concomitant]
  3. NITROQUICK (GLYCERYL TRINITRATE) (UNKNOWN)? [Concomitant]
  4. RENVELA (SEVELAMER CARBONATE) (UNKNOWN) [Concomitant]
  5. LEVEMIR (INSULIN DETEMIR) (UNKNOWN) [Concomitant]
  6. PRAVASTATIN (PRAVASTATIN) (UNKNOWN) [Concomitant]
  7. NOVOLOG (INSULIN ASPART) (UNKNOWN) [Concomitant]
  8. ALLOPURINOL (ALLOPURINOL) (UNKNOWN) [Concomitant]
  9. OMEPRAZOLE (OMEPRAZOLE) (UNKNOWN) [Concomitant]
  10. MVI (MVI) (UNKNOWN) [Concomitant]
  11. ASPIRIN (ACETYLSALICYLIC ACID) (UNKNOWN) (ACETYLSALICYLIC ACID) [Concomitant]
  12. DEXAMETHASONE (DEXAMETHASONE) (UNKNOWN) [Concomitant]
  13. DIOVAN (VALSARTAN) (UNKNOWN) [Concomitant]
  14. TOPROL XL (METOPROLOL SUCCINATE) (UNKNOWN) [Concomitant]

REACTIONS (2)
  - Pneumonia [None]
  - Alopecia [None]
